FAERS Safety Report 5278631-9 (Version None)
Quarter: 2007Q1

REPORT INFORMATION
  Report Type: 
  Country: None (occurrence: None)
  Receive Date: 20061213
  Receipt Date: 20050509
  Transmission Date: 20070707
  Serious: Yes (Hospitalization)
  Sender: FDA-Public Use
  Company Number: 2005UW07214

PATIENT
  Age: 55 Year
  Sex: Female
  Weight: 113.39 kg

DRUGS (6)
  1. SEROQUEL [Suspect]
     Indication: MANIA
  2. VERAPAMIL [Concomitant]
  3. UNSPECIFIED BLOOD PRESSURE MEDICATION [Concomitant]
  4. PREMARIN [Concomitant]
  5. ANTI DIABETIC [Concomitant]
  6. MULTIPLE UNSPECIFIED MEDICATIONS [Concomitant]

REACTIONS (1)
  - PSYCHOTIC DISORDER [None]
